FAERS Safety Report 8190285-0 (Version None)
Quarter: 2012Q1

REPORT INFORMATION
  Report Type: 
  Country: None (occurrence: None)
  Receive Date: 20120307
  Receipt Date: 20120301
  Transmission Date: 20120608
  Serious: Yes (Death, Other)
  Sender: FDA-Public Use
  Company Number: US-ELI_LILLY_AND_COMPANY-US201201000732

PATIENT
  Sex: Female

DRUGS (9)
  1. IMITREX [Concomitant]
  2. GEMZAR [Suspect]
     Indication: PANCREATIC CARCINOMA
     Dosage: 900 MG, UNK
     Dates: start: 20100609, end: 20101117
  3. MORPHINE SULFATE [Concomitant]
  4. ATENOLOL [Concomitant]
  5. ATIVAN [Concomitant]
  6. ZOFRAN [Concomitant]
  7. OMEPRAZOLE [Concomitant]
  8. OXALIPLATIN [Concomitant]
     Indication: PANCREATIC CARCINOMA
     Dosage: UNK
     Dates: start: 20101028
  9. MORPHINE SULFATE [Concomitant]

REACTIONS (8)
  - HOSPICE CARE [None]
  - DEATH [None]
  - DECREASED APPETITE [None]
  - METASTASES TO PERITONEUM [None]
  - METASTASES TO LUNG [None]
  - NEOPLASM PROGRESSION [None]
  - THROMBOCYTOPENIA [None]
  - ASTHENIA [None]
